FAERS Safety Report 9168889 (Version 1)
Quarter: 2013Q1

REPORT INFORMATION
  Report Type: Spontaneous
  Country: US (occurrence: US)
  Receive Date: 20130318
  Receipt Date: 20130318
  Transmission Date: 20140127
  Serious: Yes (Other)
  Sender: FDA-Public Use
  Company Number: US-ASTRAZENECA-2013SE16414

PATIENT
  Age: 44 Year
  Sex: Male
  Weight: 81.3 kg

DRUGS (19)
  1. SEROQUEL [Suspect]
     Indication: BIPOLAR DISORDER
     Route: 048
     Dates: start: 2005
  2. SEROQUEL [Suspect]
     Indication: SCHIZOPHRENIA
     Route: 048
     Dates: start: 2005
  3. SEROQUEL [Suspect]
     Indication: BIPOLAR DISORDER
     Route: 048
  4. SEROQUEL [Suspect]
     Indication: SCHIZOPHRENIA
     Route: 048
  5. SEROQUEL [Suspect]
     Indication: BIPOLAR DISORDER
     Route: 048
     Dates: end: 2012
  6. SEROQUEL [Suspect]
     Indication: SCHIZOPHRENIA
     Route: 048
     Dates: end: 2012
  7. ZESTRIL [Suspect]
     Indication: HYPERTENSION
     Route: 048
  8. OMEPRAZOLE [Suspect]
     Route: 048
  9. VYTORIN [Concomitant]
  10. FERROUS SULFATE [Concomitant]
  11. FOLIC ACID [Concomitant]
  12. SYNTHROID [Concomitant]
  13. NIASPAN [Concomitant]
  14. NITROGLYCERIN [Concomitant]
  15. ALBUTEROL [Concomitant]
  16. OSTEPOROSIS MEDICATION [Concomitant]
  17. RESPERIDONE [Concomitant]
  18. DEPAKOTE [Concomitant]
  19. NASAL SPRAY FOR ALLERGIES [Concomitant]

REACTIONS (24)
  - Cerebrovascular accident [Unknown]
  - Blindness [Unknown]
  - Hypertension [Unknown]
  - Osteoporosis [Unknown]
  - Drug dependence [Unknown]
  - Hernia [Unknown]
  - Blood glucose abnormal [Unknown]
  - Mania [Unknown]
  - Salivary hypersecretion [Unknown]
  - Decreased activity [Unknown]
  - Cognitive disorder [Unknown]
  - Affective disorder [Unknown]
  - Listless [Unknown]
  - Memory impairment [Unknown]
  - Weight increased [Unknown]
  - Hypersomnia [Unknown]
  - Increased appetite [Unknown]
  - Sleep-related eating disorder [Unknown]
  - Somnambulism [Unknown]
  - Syncope [Unknown]
  - Large intestine polyp [Unknown]
  - Middle insomnia [Unknown]
  - Drug dose omission [Unknown]
  - Cardiac valve disease [Unknown]
